FAERS Safety Report 5161000-X (Version None)
Quarter: 2006Q4

REPORT INFORMATION
  Report Type: 
  Country: None (occurrence: None)
  Receive Date: 20061130
  Receipt Date: 20061127
  Transmission Date: 20070319
  Serious: Yes (Hospitalization)
  Sender: FDA-Public Use
  Company Number: US-AMGEN-US201272

PATIENT
  Age: 18 Year
  Sex: Male

DRUGS (1)
  1. KINERET [Suspect]
     Indication: JUVENILE ARTHRITIS
     Dates: end: 20060101

REACTIONS (1)
  - VIRAL PERICARDITIS [None]
